FAERS Safety Report 6671538-1 (Version None)
Quarter: 2010Q2

REPORT INFORMATION
  Report Type: 
  Country: None (occurrence: None)
  Receive Date: 20100407
  Receipt Date: 20100326
  Transmission Date: 20101027
  Serious: Yes (Hospitalization)
  Sender: FDA-Public Use
  Company Number: DE-WATSON-2010-04057

PATIENT
  Age: 58 Year
  Sex: Male
  Weight: 100 kg

DRUGS (3)
  1. FLUOXETINE [Suspect]
     Indication: AGORAPHOBIA
     Dosage: 80-120 MG DAILY
     Route: 048
  2. FLUOXETINE [Suspect]
     Indication: PANIC DISORDER
  3. REDUCTIL                           /01356801/ [Suspect]
     Indication: WEIGHT DECREASED
     Dosage: 15 MG, DAILY
     Route: 048

REACTIONS (2)
  - DRUG INTERACTION [None]
  - SEROTONIN SYNDROME [None]
